FAERS Safety Report 7897125-5 (Version None)
Quarter: 2011Q4

REPORT INFORMATION
  Report Type: 
  Country: None (occurrence: None)
  Receive Date: 20111104
  Receipt Date: 20111104
  Transmission Date: 20120403
  Serious: Yes (Death, Life-Threatening, Hospitalization)
  Sender: FDA-Public Use
  Company Number: None

PATIENT
  Sex: Female
  Weight: 71 kg

DRUGS (17)
  1. VENLAFAXINE [Concomitant]
  2. LORAZEPAM [Concomitant]
  3. MULTI-VITAMIN [Concomitant]
  4. MULTAQ [Suspect]
     Dosage: MULTAQ - DOSE UNKNOWN DAILY BY MOUTH
     Route: 048
  5. ATENOLOL [Concomitant]
  6. POTASSIUM CHLORIDE [Concomitant]
  7. POTASSIUM CHLORIDE [Concomitant]
  8. FUROSEMIDE [Concomitant]
  9. METFORMIN [Concomitant]
  10. LIDODERM [Concomitant]
  11. MULTAQ [Concomitant]
  12. VITAMIN D [Concomitant]
  13. OXYCODONE HCL [Concomitant]
  14. WARFARIN SODIUM [Concomitant]
  15. CLONIDINE [Concomitant]
  16. ATORVASTATIN [Concomitant]
  17. ASPIRIN [Concomitant]

REACTIONS (5)
  - POTENTIATING DRUG INTERACTION [None]
  - UPPER GASTROINTESTINAL HAEMORRHAGE [None]
  - INTERNATIONAL NORMALISED RATIO INCREASED [None]
  - RENAL FAILURE ACUTE [None]
  - HEPATIC ENZYME INCREASED [None]
